FAERS Safety Report 14409039 (Version 10)
Quarter: 2019Q2

REPORT INFORMATION
  Report Type: Spontaneous
  Country: US (occurrence: US)
  Receive Date: 20180119
  Receipt Date: 20190423
  Transmission Date: 20190711
  Serious: No
  Sender: FDA-Public Use
  Company Number: US-BRISTOL-MYERS SQUIBB COMPANY-BMS-2018-004343

PATIENT
  Sex: Female
  Weight: 63.95 kg

DRUGS (3)
  1. ORENCIA [Suspect]
     Active Substance: ABATACEPT
     Indication: PRODUCT USED FOR UNKNOWN INDICATION
     Dosage: UNK
     Route: 065
     Dates: start: 201804
  2. ORENCIA [Suspect]
     Active Substance: ABATACEPT
     Indication: RHEUMATOID ARTHRITIS
     Dosage: 750 MG, Q4WK
     Route: 042
     Dates: start: 201506
  3. ORENCIA [Suspect]
     Active Substance: ABATACEPT
     Indication: PRODUCT USED FOR UNKNOWN INDICATION
     Dosage: UNK
     Route: 065
     Dates: start: 201712

REACTIONS (12)
  - Pain in extremity [Unknown]
  - Tooth infection [Unknown]
  - Influenza [Unknown]
  - Cough [Recovered/Resolved]
  - Platelet count decreased [Unknown]
  - Alopecia [Unknown]
  - Hypertension [Unknown]
  - Hypersensitivity [Unknown]
  - Malaise [Unknown]
  - Blood glucose increased [Unknown]
  - Dizziness [Unknown]
  - Diarrhoea [Unknown]
